FAERS Safety Report 24124113 (Version 7)
Quarter: 2025Q1

REPORT INFORMATION
  Report Type: Spontaneous
  Country: FR (occurrence: FR)
  Receive Date: 20240723
  Receipt Date: 20250113
  Transmission Date: 20250409
  Serious: Yes (Congenital Anomaly)
  Sender: BOEHRINGER INGELHEIM
  Company Number: None

PATIENT
  Age: 33 Week
  Sex: Female
  Weight: 3.405 kg

DRUGS (17)
  1. IPRATROPIUM BROMIDE\FENOTEROL HYDROBROMIDE [Suspect]
     Active Substance: FENOTEROL HYDROBROMIDE\IPRATROPIUM BROMIDE
     Indication: Cystic fibrosis
     Dosage: 1 UNIT, 8 HOURS
     Route: 065
     Dates: start: 20240516
  2. IPRATROPIUM BROMIDE\FENOTEROL HYDROBROMIDE [Suspect]
     Active Substance: FENOTEROL HYDROBROMIDE\IPRATROPIUM BROMIDE
     Indication: Cystic fibrosis
  3. SPIRIVA RESPIMAT [Suspect]
     Active Substance: TIOTROPIUM BROMIDE
     Indication: Cystic fibrosis
     Dosage: 2 DOSAGE FORMS
     Route: 064
     Dates: start: 20231029
  4. SINGULAIR [Suspect]
     Active Substance: MONTELUKAST SODIUM
     Indication: Cystic fibrosis
     Route: 065
     Dates: start: 20240516
  5. SINGULAIR [Suspect]
     Active Substance: MONTELUKAST SODIUM
     Indication: Cystic fibrosis
  6. ALBUTEROL [Suspect]
     Active Substance: ALBUTEROL
     Indication: Cystic fibrosis
     Route: 064
     Dates: start: 20231029, end: 20240510
  7. ELEXACAFTOR\IVACAFTOR\TEZACAFTOR [Suspect]
     Active Substance: ELEXACAFTOR\IVACAFTOR\TEZACAFTOR
     Indication: Cystic fibrosis
     Dosage: 2 DOSAGE FORMS
     Route: 064
     Dates: start: 20231029
  8. KALYDECO [Suspect]
     Active Substance: IVACAFTOR
     Indication: Cystic fibrosis
     Dosage: 1 DOSAGE FORMS
     Route: 064
     Dates: start: 20231029
  9. PANCRELIPASE [Suspect]
     Active Substance: PANCRELIPASE
     Indication: Cystic fibrosis
     Route: 064
     Dates: start: 20231029
  10. COLISTIMETHATE SODIUM [Suspect]
     Active Substance: COLISTIMETHATE SODIUM
     Indication: Cystic fibrosis
     Dosage: 2 MILLI-INTERNATIONAL UNIT
     Route: 064
     Dates: start: 20231029
  11. CETIRIZINE HYDROCHLORIDE [Suspect]
     Active Substance: CETIRIZINE HYDROCHLORIDE
     Indication: Cystic fibrosis
     Route: 064
     Dates: start: 20231029
  12. ALBUTEROL [Suspect]
     Active Substance: ALBUTEROL
     Indication: Cystic fibrosis
     Route: 064
     Dates: start: 20231029, end: 20240510
  13. CREON [Suspect]
     Active Substance: PANCRELIPASE AMYLASE\PANCRELIPASE LIPASE\PANCRELIPASE PROTEASE
     Indication: Cystic fibrosis
     Route: 064
     Dates: start: 20231029
  14. INNOVAIR [Suspect]
     Active Substance: BECLOMETHASONE DIPROPIONATE\FORMOTEROL
     Indication: Cystic fibrosis
     Route: 064
     Dates: start: 20231029
  15. PULMOZYME [Suspect]
     Active Substance: DORNASE ALFA
     Indication: Cystic fibrosis
     Route: 064
     Dates: start: 20231029, end: 20240516
  16. ESOMEPRAZOLE [Suspect]
     Active Substance: ESOMEPRAZOLE
     Indication: Cystic fibrosis
     Route: 064
     Dates: start: 20231029
  17. AMBROXOL HYDROCHLORIDE [Suspect]
     Active Substance: AMBROXOL HYDROCHLORIDE
     Indication: Cystic fibrosis
     Route: 064
     Dates: start: 20240516

REACTIONS (5)
  - Maternal exposure during pregnancy [Not Recovered/Not Resolved]
  - Foetal macrosomia [Recovered/Resolved]
  - Left-to-right cardiac shunt [Not Recovered/Not Resolved]
  - Conjunctivitis [Not Recovered/Not Resolved]
  - Amniotic fluid index increased [Recovered/Resolved]

NARRATIVE: CASE EVENT DATE: 20231029
